FAERS Safety Report 9199648 (Version 1)
Quarter: 2013Q1

REPORT INFORMATION
  Report Type: Spontaneous
  Country: FR (occurrence: FR)
  Receive Date: 20130329
  Receipt Date: 20130329
  Transmission Date: 20140127
  Serious: Yes (Death)
  Sender: FDA-Public Use
  Company Number: FR-PFIZER INC-2013098890

PATIENT
  Sex: Female

DRUGS (1)
  1. ZYVOXID [Suspect]
     Indication: DEVICE RELATED INFECTION
     Route: 042

REACTIONS (1)
  - Bone marrow failure [Fatal]
